FAERS Safety Report 24231854 (Version 1)
Quarter: 2024Q3

REPORT INFORMATION
  Report Type: Spontaneous
  Country: US (occurrence: US)
  Receive Date: 20240821
  Receipt Date: 20240821
  Transmission Date: 20241017
  Serious: Yes (Other)
  Sender: MYLAN
  Company Number: US-MYLANLABS-2024M1075636

PATIENT
  Age: 34 Year
  Sex: Female

DRUGS (1)
  1. DEXAMETHASONE [Suspect]
     Active Substance: DEXAMETHASONE
     Indication: Headache
     Dosage: UNK, TREATMENT COMPLETED
     Route: 065

REACTIONS (2)
  - Rebound effect [Unknown]
  - Headache [Unknown]
